FAERS Safety Report 4689583-4 (Version None)
Quarter: 2005Q2

REPORT INFORMATION
  Report Type: 
  Country: None (occurrence: None)
  Receive Date: 20050613
  Receipt Date: 20050613
  Transmission Date: 20051028
  Serious: Yes (Other)
  Sender: FDA-Public Use
  Company Number: None

PATIENT
  Age: 71 Year
  Sex: Male
  Weight: 56.6996 kg

DRUGS (2)
  1. EVOXAC [Suspect]
     Indication: DRY MOUTH
     Dosage: THREE TIMES A DAY
  2. SYNTHROID [Concomitant]

REACTIONS (7)
  - CHILLS [None]
  - EYE PAIN [None]
  - FLUSHING [None]
  - HEADACHE [None]
  - LACRIMATION INCREASED [None]
  - POLLAKIURIA [None]
  - RHINORRHOEA [None]
